FAERS Safety Report 18556659 (Version 5)
Quarter: 2021Q2

REPORT INFORMATION
  Report Type: Spontaneous
  Country: CA (occurrence: CA)
  Receive Date: 20201128
  Receipt Date: 20210528
  Transmission Date: 20210717
  Serious: Yes (Hospitalization, Other)
  Sender: FDA-Public Use
  Company Number: CA-B.I. PHARMACEUTICALS,INC./RIDGEFIELD-2020-BI-064561

PATIENT
  Age: 75 Year
  Sex: Male

DRUGS (23)
  1. METOPROLOL TARTRATE. [Suspect]
     Active Substance: METOPROLOL TARTRATE
     Indication: CARDIAC FAILURE
     Route: 048
     Dates: start: 20180103
  2. AMIODARONE HYDROCHLORIDE. [Suspect]
     Active Substance: AMIODARONE HYDROCHLORIDE
     Indication: ATRIAL FIBRILLATION
     Route: 048
     Dates: start: 20180214, end: 20201110
  3. RIVAROXABAN [Concomitant]
     Active Substance: RIVAROXABAN
  4. ROSUVASTATIN CALCIUM. [Concomitant]
     Active Substance: ROSUVASTATIN CALCIUM
     Indication: PRODUCT USED FOR UNKNOWN INDICATION
  5. FUROSEMIDE. [Suspect]
     Active Substance: FUROSEMIDE
     Indication: DIURETIC THERAPY
     Route: 048
     Dates: start: 20060215
  6. DILTIAZEM HYDROCHLORIDE. [Suspect]
     Active Substance: DILTIAZEM HYDROCHLORIDE
     Indication: ANGINA PECTORIS
     Route: 048
     Dates: start: 20181219
  7. TRAZODONE [Concomitant]
     Active Substance: TRAZODONE HYDROCHLORIDE
     Indication: PRODUCT USED FOR UNKNOWN INDICATION
  8. CLOPIDOGREL [Concomitant]
     Active Substance: CLOPIDOGREL BISULFATE
     Indication: CARDIAC FAILURE
     Route: 048
     Dates: start: 20180404
  9. FLOMAX [Suspect]
     Active Substance: TAMSULOSIN HYDROCHLORIDE
     Indication: PROSTATOMEGALY
     Route: 048
     Dates: start: 20110811
  10. CANDESARTAN CILEXETIL. [Suspect]
     Active Substance: CANDESARTAN CILEXETIL
     Indication: CARDIAC FAILURE
     Route: 048
     Dates: start: 20180920
  11. CANDESARTAN. [Suspect]
     Active Substance: CANDESARTAN
     Indication: CARDIAC FAILURE
     Route: 048
  12. METOPROLOL. [Suspect]
     Active Substance: METOPROLOL
     Indication: CARDIAC FAILURE
     Route: 048
  13. NITROGLYCERIN. [Suspect]
     Active Substance: NITROGLYCERIN
     Indication: ANGINA PECTORIS
     Route: 061
  14. EZETIMIBE. [Concomitant]
     Active Substance: EZETIMIBE
     Indication: DYSLIPIDAEMIA
     Route: 048
     Dates: start: 20180418
  15. RIVAROXABAN [Concomitant]
     Active Substance: RIVAROXABAN
     Indication: CORONARY ARTERY DISEASE
     Route: 048
     Dates: start: 20180214
  16. JARDIANCE [Suspect]
     Active Substance: EMPAGLIFLOZIN
     Indication: CARDIAC FAILURE
     Route: 048
     Dates: start: 20180725, end: 20201106
  17. PRAMIPEXOLE DIHYDROCHLORIDE. [Suspect]
     Active Substance: PRAMIPEXOLE DIHYDROCHLORIDE
     Indication: RESTLESS LEGS SYNDROME
     Route: 048
  18. CLOPIDOGREL [Concomitant]
     Active Substance: CLOPIDOGREL BISULFATE
  19. AMLODIPINE BESILATE [Suspect]
     Active Substance: AMLODIPINE BESYLATE
     Indication: CARDIAC FAILURE
     Route: 048
     Dates: start: 20180214, end: 20201110
  20. BICALUTAMIDE. [Concomitant]
     Active Substance: BICALUTAMIDE
  21. GLYCERYL TRINITRATE [Suspect]
     Active Substance: NITROGLYCERIN
     Indication: ANGINA PECTORIS
     Route: 061
  22. CRESTOR [Concomitant]
     Active Substance: ROSUVASTATIN CALCIUM
     Indication: DYSLIPIDAEMIA
     Route: 048
     Dates: start: 20120524
  23. BICALUTAMIDE. [Concomitant]
     Active Substance: BICALUTAMIDE
     Indication: NEOPLASM MALIGNANT
     Route: 048

REACTIONS (5)
  - Adrenal insufficiency [Not Recovered/Not Resolved]
  - Hyperthyroidism [Not Recovered/Not Resolved]
  - Hypotension [Not Recovered/Not Resolved]
  - Hypotension [Recovered/Resolved with Sequelae]
  - Troponin increased [Not Recovered/Not Resolved]

NARRATIVE: CASE EVENT DATE: 20201101
